FAERS Safety Report 14618924 (Version 2)
Quarter: 2018Q2

REPORT INFORMATION
  Report Type: Report from Study
  Country: IT (occurrence: IT)
  Receive Date: 20180309
  Receipt Date: 20180401
  Transmission Date: 20180711
  Serious: Yes (Other)
  Sender: FDA-Public Use
  Company Number: IT-IPSEN BIOPHARMACEUTICALS, INC.-2018-03552

PATIENT
  Age: 82 Year
  Sex: Male

DRUGS (16)
  1. IRINOTECAN [Suspect]
     Active Substance: IRINOTECAN
     Indication: OFF LABEL USE
     Dosage: NOT REPORTED
     Route: 041
     Dates: start: 20151118, end: 20151118
  2. 5-FU [Suspect]
     Active Substance: FLUOROURACIL
     Route: 040
     Dates: start: 20151118, end: 20151118
  3. ZANTAC [Concomitant]
     Active Substance: RANITIDINE HYDROCHLORIDE
     Dates: start: 20150624
  4. 5-FU [Suspect]
     Active Substance: FLUOROURACIL
     Route: 041
     Dates: start: 20151118, end: 20151118
  5. 5-FU [Suspect]
     Active Substance: FLUOROURACIL
     Indication: COLORECTAL CANCER METASTATIC
     Route: 041
     Dates: start: 20150624, end: 20150624
  6. MAGNESIUM SULFATE. [Concomitant]
     Active Substance: MAGNESIUM SULFATE
  7. IRINOTECAN [Suspect]
     Active Substance: IRINOTECAN
     Indication: COLORECTAL CANCER METASTATIC
     Dosage: 240 MG
     Dates: start: 20150624, end: 20150624
  8. AFLIBERCEPT [Suspect]
     Active Substance: AFLIBERCEPT
     Route: 041
     Dates: start: 20151118, end: 20151118
  9. INSULIN [Concomitant]
     Active Substance: INSULIN NOS
     Dates: start: 2014
  10. GLUTATHIONE [Concomitant]
     Active Substance: GLUTATHIONE
  11. CALCIUM GLUCONATE. [Concomitant]
     Active Substance: CALCIUM GLUCONATE
  12. AFLIBERCEPT [Suspect]
     Active Substance: AFLIBERCEPT
     Indication: COLORECTAL CANCER METASTATIC
     Route: 041
     Dates: start: 20150624, end: 20150624
  13. 5-FU [Suspect]
     Active Substance: FLUOROURACIL
     Route: 040
     Dates: start: 20150624, end: 20150624
  14. LEUCOVORIN. [Suspect]
     Active Substance: LEUCOVORIN
     Indication: COLORECTAL CANCER METASTATIC
     Route: 041
     Dates: start: 20150624, end: 20150624
  15. LEUCOVORIN. [Suspect]
     Active Substance: LEUCOVORIN
     Route: 041
     Dates: start: 20151118, end: 20151118
  16. LOPERAMIDE [Concomitant]
     Active Substance: LOPERAMIDE

REACTIONS (2)
  - Cardiac failure [Recovered/Resolved]
  - Off label use [Unknown]

NARRATIVE: CASE EVENT DATE: 20151123
